FAERS Safety Report 19241929 (Version 1)
Quarter: 2021Q2

REPORT INFORMATION
  Report Type: Spontaneous
  Country: PL (occurrence: PL)
  Receive Date: 20210511
  Receipt Date: 20210511
  Transmission Date: 20210717
  Serious: Yes (Other)
  Sender: FDA-Public Use
  Company Number: PL-TEVA-2021-PL-1908714

PATIENT
  Age: 49 Year
  Sex: Female
  Weight: 64 kg

DRUGS (3)
  1. CALCII FOLINAS [Suspect]
     Active Substance: LEUCOVORIN
     Indication: COLON CANCER
     Dosage: 384MILLIGRAM
     Route: 042
     Dates: start: 20180425, end: 20181113
  2. IRINOTECAN [Suspect]
     Active Substance: IRINOTECAN
     Indication: COLON CANCER
     Dosage: 345.6MILLIGRAM
     Route: 042
     Dates: start: 20180425, end: 20181113
  3. 5?FLUOROURACIL [Suspect]
     Active Substance: FLUOROURACIL
     Indication: COLON CANCER
     Dosage: DOSE: 768 MG ? BOLUS; 1152 MG ? DRIP
     Route: 042
     Dates: start: 20180425, end: 20181113

REACTIONS (1)
  - Neutropenia [Unknown]

NARRATIVE: CASE EVENT DATE: 20181127
